FAERS Safety Report 21183101 (Version 1)
Quarter: 2022Q3

REPORT INFORMATION
  Report Type: Spontaneous
  Country: DE (occurrence: DE)
  Receive Date: 20220808
  Receipt Date: 20220808
  Transmission Date: 20221027
  Serious: Yes (Other)
  Sender: FDA-Public Use
  Company Number: DE-TAKEDA-2022TUS052454

PATIENT
  Age: 47 Year
  Sex: Female

DRUGS (1)
  1. ENANTONE MONATS-DEPOT [Suspect]
     Active Substance: LEUPROLIDE ACETATE
     Indication: Breast cancer
     Route: 065
     Dates: start: 2013, end: 2014

REACTIONS (10)
  - Mast cell activation syndrome [Unknown]
  - Anaphylactic reaction [Unknown]
  - Hypothalamic pituitary adrenal axis suppression [Unknown]
  - Blood corticotrophin decreased [Unknown]
  - Cognitive disorder [Unknown]
  - Aphasia [Unknown]
  - Memory impairment [Unknown]
  - Disturbance in attention [Unknown]
  - Malaise [Unknown]
  - Fatigue [Unknown]
